FAERS Safety Report 5029180-4 (Version None)
Quarter: 2006Q2

REPORT INFORMATION
  Report Type: 
  Country: None (occurrence: None)
  Receive Date: 20060615
  Receipt Date: 20060615
  Transmission Date: 20061013
  Serious: Yes (Hospitalization, Other)
  Sender: FDA-Public Use
  Company Number: None

PATIENT
  Age: 23 Year
  Sex: Male
  Weight: 150.5942 kg

DRUGS (2)
  1. BACTRIM [Suspect]
     Indication: CELLULITIS
     Dates: start: 20060604, end: 20060612
  2. BACTRIM [Suspect]
     Indication: NOCARDIOSIS
     Dates: start: 20060604, end: 20060612

REACTIONS (9)
  - BLOOD DISORDER [None]
  - DRUG HYPERSENSITIVITY [None]
  - DRUG INEFFECTIVE [None]
  - DYSGEUSIA [None]
  - ERYTHEMA [None]
  - INFLAMMATION [None]
  - PAIN [None]
  - PRURITUS [None]
  - RASH [None]
